FAERS Safety Report 25884359 (Version 1)
Quarter: 2025Q4

REPORT INFORMATION
  Report Type: Spontaneous
  Country: US (occurrence: None)
  Receive Date: 20251004
  Receipt Date: 20251004
  Transmission Date: 20260118
  Serious: Yes (Hospitalization)
  Sender: FDA-CTU
  Company Number: None

PATIENT
  Age: 57 Year
  Sex: Female
  Weight: 67.2 kg

DRUGS (5)
  1. FLUOROURACIL [Suspect]
     Active Substance: FLUOROURACIL
     Dates: end: 20250926
  2. XELODA [Suspect]
     Active Substance: CAPECITABINE
     Dates: end: 20250710
  3. CAMPTOSAR [Suspect]
     Active Substance: IRINOTECAN HYDROCHLORIDE
     Dates: end: 20250924
  4. LEUCOVORIN CALCIUM [Suspect]
     Active Substance: LEUCOVORIN CALCIUM
     Dates: end: 20250924
  5. ELOXATIN [Suspect]
     Active Substance: OXALIPLATIN
     Indication: Peripheral sensory neuropathy
     Dates: end: 20250910

REACTIONS (7)
  - Nausea [None]
  - Vomiting [None]
  - Diarrhoea [None]
  - Abdominal pain [None]
  - Malaise [None]
  - Hypokalaemia [None]
  - Food intolerance [None]

NARRATIVE: CASE EVENT DATE: 20250928
